FAERS Safety Report 7140971-6 (Version None)
Quarter: 2010Q4

REPORT INFORMATION
  Report Type: 
  Country: None (occurrence: None)
  Receive Date: 20101201
  Receipt Date: 20101201
  Transmission Date: 20110411
  Serious: No
  Sender: FDA-Public Use
  Company Number: None

PATIENT

DRUGS (1)
  1. ORAJEL FLOURIDE FREE SAFE TO SWALLOW TOOTHPASTE [Suspect]
     Dosage: 2 OUNCES OTHER
     Dates: start: 20101116, end: 20101118

REACTIONS (2)
  - DIARRHOEA [None]
  - VOMITING [None]
